FAERS Safety Report 6904470-6 (Version None)
Quarter: 2010Q3

REPORT INFORMATION
  Report Type: 
  Country: None (occurrence: None)
  Receive Date: 20100804
  Receipt Date: 20090601
  Transmission Date: 20110219
  Serious: No
  Sender: FDA-Public Use
  Company Number: US-PFIZER INC-2009167216

PATIENT
  Sex: Female

DRUGS (1)
  1. LYRICA [Suspect]
     Dosage: UNK

REACTIONS (5)
  - BURNING SENSATION [None]
  - COELIAC DISEASE [None]
  - HYPERHIDROSIS [None]
  - NERVOUSNESS [None]
  - VAGINAL DISCHARGE [None]
